FAERS Safety Report 7249016-0 (Version None)
Quarter: 2011Q1

REPORT INFORMATION
  Report Type: 
  Country: None (occurrence: None)
  Receive Date: 20110105
  Receipt Date: 20110105
  Transmission Date: 20110831
  Serious: Yes (Death)
  Sender: FDA-Public Use
  Company Number: None

PATIENT
  Sex: Male
  Weight: 63.5036 kg

DRUGS (2)
  1. AMIODARONE HCL [Suspect]
     Indication: ANGIOPLASTY
     Dosage: 200 MG TAKE 1 TABLET BY STANFORD DR. P. WANG
     Dates: start: 20090130
  2. MEPHYTON [Suspect]
     Dosage: 5MG TAKE 1/2 TABLET BY EL CAMINO DR. T. SINGH
     Dates: start: 20090131

REACTIONS (1)
  - VICTIM OF ABUSE [None]
